FAERS Safety Report 4837072-6 (Version None)
Quarter: 2005Q4

REPORT INFORMATION
  Report Type: 
  Country: None (occurrence: None)
  Receive Date: 20051122
  Receipt Date: 20050606
  Transmission Date: 20060501
  Serious: Yes (Hospitalization)
  Sender: FDA-Public Use
  Company Number: 2005BI011021

PATIENT
  Age: 49 Year
  Sex: Female

DRUGS (1)
  1. AVONEX [Suspect]
     Indication: MULTIPLE SCLEROSIS
     Dosage: IM
     Route: 030
     Dates: start: 20040628

REACTIONS (8)
  - ABASIA [None]
  - APHAGIA [None]
  - ASTHENIA [None]
  - CONDITION AGGRAVATED [None]
  - DYSPHAGIA [None]
  - MULTIPLE SCLEROSIS [None]
  - STRESS [None]
  - VOMITING [None]
